FAERS Safety Report 25096644 (Version 1)
Quarter: 2025Q1

REPORT INFORMATION
  Report Type: Spontaneous
  Country: FR (occurrence: FR)
  Receive Date: 20250319
  Receipt Date: 20250319
  Transmission Date: 20250409
  Serious: Yes (Disabling)
  Sender: SANOFI AVENTIS
  Company Number: FR-SA-2025SA074100

PATIENT
  Age: 13 Year
  Sex: Female
  Weight: 42 kg

DRUGS (3)
  1. DUPIXENT [Suspect]
     Active Substance: DUPILUMAB
     Indication: Asthma
     Dosage: 200 MG, QOW
     Route: 058
     Dates: start: 2025
  2. BILASTINE [Concomitant]
     Active Substance: BILASTINE
     Indication: Rhinitis allergic
     Dosage: 1 TABLET PER DAY
  3. INNOVAIR [Concomitant]
     Active Substance: BECLOMETHASONE DIPROPIONATE\FORMOTEROL
     Indication: Asthma
     Route: 055
     Dates: start: 20241028

REACTIONS (7)
  - Loss of personal independence in daily activities [Unknown]
  - Haematoma [Unknown]
  - Skin plaque [Unknown]
  - Skin lesion [Recovered/Resolved]
  - Pain [Unknown]
  - Livedo reticularis [Unknown]
  - Myalgia [Unknown]

NARRATIVE: CASE EVENT DATE: 20250306
